FAERS Safety Report 5345792-2 (Version None)
Quarter: 2007Q2

REPORT INFORMATION
  Report Type: 
  Country: None (occurrence: None)
  Receive Date: 20070426
  Receipt Date: 20061130
  Transmission Date: 20071010
  Serious: Yes (Other)
  Sender: FDA-Public Use
  Company Number: US-JNJFOC-20061200643

PATIENT
  Age: 69 Year
  Sex: Female

DRUGS (4)
  1. ULTRAM [Suspect]
     Indication: SPINAL COLUMN STENOSIS
     Dosage: 50 MG, 3 IN 1 DAY
     Dates: start: 19960101, end: 20060901
  2. TRANXENE [Concomitant]
  3. CARAFATE (SUCRALFATE) LIQUID [Concomitant]
  4. PREVACID (LANSOPRAZOLE) TABLET [Concomitant]

REACTIONS (3)
  - DRUG DEPENDENCE [None]
  - DYSPNOEA [None]
  - HYPERHIDROSIS [None]
